FAERS Safety Report 5589726-4 (Version None)
Quarter: 2008Q1

REPORT INFORMATION
  Report Type: 
  Country: None (occurrence: None)
  Receive Date: 20080114
  Receipt Date: 20080111
  Transmission Date: 20080703
  Serious: Yes (Other)
  Sender: FDA-Public Use
  Company Number: B0502389A

PATIENT
  Age: 14 Year
  Sex: Male

DRUGS (2)
  1. LAMIVUDINE [Suspect]
     Dosage: 100MG PER DAY
     Route: 048
     Dates: start: 20070220
  2. PEGASYS [Suspect]
     Dosage: 135MCG WEEKLY
     Route: 058
     Dates: start: 20070418

REACTIONS (2)
  - ALOPECIA [None]
  - HEADACHE [None]
